FAERS Safety Report 8601010 (Version 5)
Quarter: 2013Q1

REPORT INFORMATION
  Report Type: Report from Study
  Country: FR (occurrence: FR)
  Receive Date: 20120606
  Receipt Date: 20130124
  Transmission Date: 20140127
  Serious: Yes (Hospitalization)
  Sender: FDA-Public Use
  Company Number: FR-ROCHE-1071742

PATIENT
  Age: 15 Year
  Sex: Female
  Weight: 54.5 kg

DRUGS (5)
  1. BEVACIZUMAB [Suspect]
     Indication: NEOPLASM MALIGNANT
     Dosage: DOSAGE FORM: 5 MG/KG, DATE OF LAST DOSE: 14 MAY 2012, TEMPORARILY INTERRUPTED.
     Route: 042
     Dates: start: 20110801, end: 20120515
  2. BEVACIZUMAB [Suspect]
     Dosage: RESTARTED.
     Route: 042
     Dates: start: 20120801
  3. CYCLOPHOSPHAMIDE [Suspect]
     Indication: NEOPLASM MALIGNANT
     Dosage: DOSAGE FORM: 17 MG/M2, DATE OF LAST DOSE: 14 MAY 2012
     Route: 048
     Dates: start: 20120315
  4. VINORELBINE [Suspect]
     Indication: NEOPLASM MALIGNANT
     Dosage: DOSAGE FORM: 17 MG/M2, DATE OF LAST DOSE: 14 MAY 2012
     Route: 042
     Dates: start: 20120315
  5. LUTENYL [Concomitant]
     Route: 065
     Dates: start: 20110801

REACTIONS (2)
  - Device dislocation [Recovered/Resolved]
  - Impaired healing [Recovered/Resolved]
